FAERS Safety Report 18603977 (Version 2)
Quarter: 2020Q4

REPORT INFORMATION
  Report Type: Spontaneous
  Country: JP (occurrence: JP)
  Receive Date: 20201211
  Receipt Date: 20201223
  Transmission Date: 20210114
  Serious: Yes (Other)
  Sender: FDA-Public Use
  Company Number: JP-JNJFOC-20201219746

PATIENT
  Age: 31 Year
  Sex: Female

DRUGS (5)
  1. REMICADE [Suspect]
     Active Substance: INFLIXIMAB
     Indication: CROHN^S DISEASE
     Route: 042
  2. BUDESONIDE. [Concomitant]
     Active Substance: BUDESONIDE
     Route: 065
  3. USTEKINUMAB [Concomitant]
     Active Substance: USTEKINUMAB
     Route: 065
  4. HUMIRA [Concomitant]
     Active Substance: ADALIMUMAB
     Dosage: UNK
     Route: 065
  5. HUMIRA [Concomitant]
     Active Substance: ADALIMUMAB
     Dosage: UNK
     Route: 065

REACTIONS (1)
  - Large intestine perforation [Recovered/Resolved]
